FAERS Safety Report 7372460-8 (Version None)
Quarter: 2011Q1

REPORT INFORMATION
  Report Type: 
  Country: None (occurrence: None)
  Receive Date: 20110324
  Receipt Date: 20110316
  Transmission Date: 20110831
  Serious: Yes (Other)
  Sender: FDA-Public Use
  Company Number: US-ROCHE-571726

PATIENT
  Sex: Male
  Weight: 77.6 kg

DRUGS (2)
  1. ACCUTANE [Suspect]
     Indication: ACNE
     Route: 065
     Dates: start: 19980418, end: 19980525
  2. ACCUTANE [Suspect]
     Dosage: 1 AND 2 ALTERNATING DAYS
     Route: 065
     Dates: start: 19980526, end: 19981113

REACTIONS (9)
  - EPISTAXIS [None]
  - COLITIS [None]
  - DEPRESSION [None]
  - ABSCESS [None]
  - INFLAMMATORY BOWEL DISEASE [None]
  - SUBCUTANEOUS ABSCESS [None]
  - CLOSTRIDIAL INFECTION [None]
  - RECTAL POLYP [None]
  - PROCTITIS [None]
